FAERS Safety Report 4794931-0 (Version None)
Quarter: 2005Q4

REPORT INFORMATION
  Report Type: 
  Country: None (occurrence: None)
  Receive Date: 20051006
  Receipt Date: 20050929
  Transmission Date: 20060501
  Serious: Yes (Hospitalization)
  Sender: FDA-Public Use
  Company Number: E044-316-3257

PATIENT
  Age: 79 Year
  Sex: Male
  Weight: 75 kg

DRUGS (11)
  1. DONEPEZIL HCL [Suspect]
     Indication: DEMENTIA
     Dosage: 5 MG, 1 IN 1 D, ORAL
     Route: 048
     Dates: start: 20031230, end: 20040110
  2. COMTESS (ENTACAPONE) [Suspect]
     Indication: PARKINSON'S DISEASE
     Dosage: 1400 MG, ORAL
     Route: 048
     Dates: start: 20031230
  3. MADOPAR (MADOPAR) [Concomitant]
  4. NACOM (CARBIDOPA) [Concomitant]
  5. SIFROL (PRAMIPEXOLE DIHYDROCHLORIDE) [Concomitant]
  6. ALNA (TAMSULOSIN HYDROCHLORIDE) [Concomitant]
  7. MAGNESIUM DIASPORAL  (MAGNESIUM CITRATE) [Concomitant]
  8. DIGIMED (DIGITOXIN) [Concomitant]
  9. AMANTADINE HCL [Concomitant]
  10. RANITIDINE [Concomitant]
  11. ASPIRIN [Concomitant]

REACTIONS (3)
  - CONDITION AGGRAVATED [None]
  - DIARRHOEA [None]
  - PARKINSON'S DISEASE [None]
